FAERS Safety Report 4814379-X (Version None)
Quarter: 2005Q4

REPORT INFORMATION
  Report Type: 
  Country: None (occurrence: None)
  Receive Date: 20051028
  Receipt Date: 20050815
  Transmission Date: 20060501
  Serious: No
  Sender: FDA-Public Use
  Company Number: US-GLAXOSMITHKLINE-A0570277A

PATIENT
  Age: 33 Year
  Sex: Female

DRUGS (3)
  1. ADVAIR DISKUS 100/50 [Suspect]
     Dosage: 1PUFF PER DAY
     Route: 055
     Dates: start: 20050811
  2. NASACORT AQ [Concomitant]
  3. ALLEGRA [Concomitant]

REACTIONS (1)
  - STOMACH DISCOMFORT [None]
